FAERS Safety Report 15571446 (Version 1)
Quarter: 2018Q4

REPORT INFORMATION
  Report Type: Spontaneous
  Country: DE (occurrence: DE)
  Receive Date: 20181031
  Receipt Date: 20181031
  Transmission Date: 20190205
  Serious: Yes (Death, Life-Threatening, Hospitalization, Other)
  Sender: FDA-Public Use
  Company Number: DE-MYLANLABS-2018M1082634

PATIENT
  Age: 28 Year
  Sex: Female
  Weight: 63 kg

DRUGS (5)
  1. EMTRICITABINE/TENOFOVIR DISOPROXIL FUMARATE [Suspect]
     Active Substance: EMTRICITABINE\TENOFOVIR DISOPROXIL FUMARATE
     Dosage: 200/245 MG OVER SEVERAL WEEKS
     Route: 048
     Dates: start: 201804
  2. EMTRICITABINE/TENOFOVIR DISOPROXIL FUMARATE [Suspect]
     Active Substance: EMTRICITABINE\TENOFOVIR DISOPROXIL FUMARATE
     Indication: PROPHYLAXIS AGAINST HIV INFECTION
     Dosage: 1 DF, QD
     Route: 048
     Dates: start: 201804
  3. EMTRICITABINE/TENOFOVIR DISOPROXIL FUMARAT E [Suspect]
     Active Substance: EMTRICITABINE\TENOFOVIR DISOPROXIL FUMARATE
     Indication: ORAL CONTRACEPTION
     Dosage: 1 DF, UNK
     Route: 048
     Dates: start: 201804
  4. RALTEGRAVIR POTASSIUM [Suspect]
     Active Substance: RALTEGRAVIR POTASSIUM
     Indication: PROPHYLAXIS AGAINST HIV INFECTION
     Dosage: 800 MG, QD
     Route: 048
     Dates: start: 201804
  5. LEVONORGESTREL. [Suspect]
     Active Substance: LEVONORGESTREL
     Indication: ORAL CONTRACEPTION
     Dosage: 1 DF, UNK
     Route: 048

REACTIONS (5)
  - Thrombocytopenia [Fatal]
  - International normalised ratio increased [Fatal]
  - Syncope [Unknown]
  - Pulmonary embolism [Fatal]
  - Product use in unapproved indication [Unknown]

NARRATIVE: CASE EVENT DATE: 201804
